FAERS Safety Report 8492871-7 (Version None)
Quarter: 2012Q3

REPORT INFORMATION
  Report Type: 
  Country: None (occurrence: None)
  Receive Date: 20120706
  Receipt Date: 20120703
  Transmission Date: 20120928
  Serious: Yes (Death)
  Sender: FDA-Public Use
  Company Number: KR-JNJFOC-20120702642

PATIENT

DRUGS (1)
  1. ABCIXIMAB [Suspect]
     Indication: EMBOLISM
     Route: 013

REACTIONS (2)
  - DEATH [None]
  - INCORRECT ROUTE OF DRUG ADMINISTRATION [None]
